FAERS Safety Report 6933476-6 (Version None)
Quarter: 2010Q3

REPORT INFORMATION
  Report Type: 
  Country: None (occurrence: None)
  Receive Date: 20100820
  Receipt Date: 20100809
  Transmission Date: 20110219
  Serious: Yes (Other)
  Sender: FDA-Public Use
  Company Number: GB-PFIZER INC-2010100139

PATIENT

DRUGS (1)
  1. NEURONTIN [Suspect]
     Dosage: 900 MG, 3X/DAY

REACTIONS (1)
  - ORTHOSTATIC HYPOTENSION [None]
